FAERS Safety Report 10533750 (Version 3)
Quarter: 2014Q4

REPORT INFORMATION
  Report Type: Report from Study
  Country: CA (occurrence: CA)
  Receive Date: 20141022
  Receipt Date: 20141107
  Transmission Date: 20150529
  Serious: Yes (Hospitalization, Other)
  Sender: FDA-Public Use
  Company Number: CA-JNJFOC-20141004029

PATIENT
  Age: 54 Year
  Sex: Female
  Weight: 56 kg

DRUGS (9)
  1. IRON [Concomitant]
     Active Substance: IRON
     Route: 065
  2. PAXIL [Concomitant]
     Active Substance: PAROXETINE HYDROCHLORIDE
     Route: 065
  3. RISPERIDONE. [Concomitant]
     Active Substance: RISPERIDONE
     Route: 065
  4. PREDNISONE. [Concomitant]
     Active Substance: PREDNISONE
     Route: 065
  5. NEXIUM [Concomitant]
     Active Substance: ESOMEPRAZOLE MAGNESIUM
     Route: 065
  6. REMICADE [Suspect]
     Active Substance: INFLIXIMAB
     Indication: CROHN^S DISEASE
     Route: 042
     Dates: start: 201311
  7. MAGNESIUM [Concomitant]
     Active Substance: MAGNESIUM
     Route: 065
  8. CODEINE [Concomitant]
     Active Substance: CODEINE
     Indication: DIARRHOEA
     Route: 065
  9. FLAGYL [Concomitant]
     Active Substance: METRONIDAZOLE\METRONIDAZOLE HYDROCHLORIDE
     Dosage: 3 MONTHS
     Route: 065

REACTIONS (12)
  - Pallor [Unknown]
  - Pneumonia [Recovered/Resolved]
  - Asthenia [Unknown]
  - Vascular access complication [Unknown]
  - Hyperhidrosis [Unknown]
  - Intestinal resection [Recovered/Resolved]
  - Blood pressure decreased [Recovering/Resolving]
  - Loss of consciousness [Recovered/Resolved]
  - Renal injury [Recovered/Resolved]
  - Syncope [Recovered/Resolved]
  - Hernia [Recovered/Resolved]
  - Psoriasis [Recovered/Resolved]

NARRATIVE: CASE EVENT DATE: 20140902
